FAERS Safety Report 9643800 (Version 1)
Quarter: 2013Q4

REPORT INFORMATION
  Report Type: Spontaneous
  Country: AR (occurrence: AR)
  Receive Date: 20131024
  Receipt Date: 20131024
  Transmission Date: 20140711
  Serious: Yes (Death, Hospitalization)
  Sender: FDA-Public Use
  Company Number: AR-B.I. PHARMACEUTICALS,INC./RIDGEFIELD-2013-BI-34108RA

PATIENT
  Age: 83 Year
  Sex: Female

DRUGS (3)
  1. PRADAXA [Suspect]
     Indication: THROMBOSIS PROPHYLAXIS
     Dosage: 110 MG
     Route: 048
     Dates: start: 2012, end: 2012
  2. PRADAXA [Suspect]
     Indication: HIP SURGERY
  3. ANTIDEPRESSIVE (NOT SPECIFIED) [Concomitant]
     Indication: DEPRESSION
     Route: 048
     Dates: end: 2012

REACTIONS (1)
  - Intestinal haemorrhage [Fatal]
